FAERS Safety Report 6177780-0 (Version None)
Quarter: 2009Q2

REPORT INFORMATION
  Report Type: 
  Country: None (occurrence: None)
  Receive Date: 20090501
  Receipt Date: 20090501
  Transmission Date: 20091009
  Serious: Yes (Life-Threatening)
  Sender: FDA-Public Use
  Company Number: None

PATIENT
  Age: 65 Year
  Sex: Female
  Weight: 47.7 kg

DRUGS (4)
  1. HYDROMORPHONE HCL [Suspect]
     Indication: PAIN
     Dosage: 2MG IV
     Route: 042
     Dates: start: 20090314
  2. ENOXAPARIN SODIUM [Concomitant]
  3. ONDANSETRON [Concomitant]
  4. PROCHLORPERAZINE [Concomitant]

REACTIONS (2)
  - DIZZINESS [None]
  - LETHARGY [None]
